FAERS Safety Report 6685430-X (Version None)
Quarter: 2010Q2

REPORT INFORMATION
  Report Type: 
  Country: None (occurrence: None)
  Receive Date: 20100418
  Receipt Date: 20100414
  Transmission Date: 20101027
  Serious: Yes (Hospitalization, Other)
  Sender: FDA-Public Use
  Company Number: JP-BRISTOL-MYERS SQUIBB COMPANY-15049307

PATIENT
  Age: 58 Year
  Sex: Male

DRUGS (3)
  1. CISPLATIN [Suspect]
     Indication: OESOPHAGEAL CARCINOMA
  2. FLUOROURACIL [Suspect]
     Indication: OESOPHAGEAL CARCINOMA
  3. RADIOTHERAPY [Suspect]
     Indication: OESOPHAGEAL CARCINOMA

REACTIONS (3)
  - ACUTE MYELOID LEUKAEMIA [None]
  - PNEUMONIA [None]
  - RESPIRATORY FAILURE [None]
